FAERS Safety Report 5015032-2 (Version None)
Quarter: 2006Q2

REPORT INFORMATION
  Report Type: 
  Country: None (occurrence: None)
  Receive Date: 20060425
  Receipt Date: 20051208
  Transmission Date: 20061013
  Serious: Yes (Other)
  Sender: FDA-Public Use
  Company Number: WAES 0512USA01244

PATIENT
  Age: 2 Year
  Sex: Female
  Weight: 24.4942 kg

DRUGS (2)
  1. SINGULAIR [Suspect]
     Indication: ASTHMA
     Dosage: 4 MG/HS/PO
     Route: 048
  2. SINGULAIR [Suspect]
     Indication: BRONCHIAL HYPERACTIVITY
     Dosage: 4 MG/HS/PO
     Route: 048

REACTIONS (2)
  - NASAL CONGESTION [None]
  - OTITIS MEDIA [None]
